FAERS Safety Report 10439095 (Version 1)
Quarter: 2014Q3

REPORT INFORMATION
  Report Type: Spontaneous
  Country: US (occurrence: US)
  Receive Date: 20140908
  Receipt Date: 20140908
  Transmission Date: 20150326
  Serious: No
  Sender: FDA-Public Use
  Company Number: US-BRISTOL-MYERS SQUIBB COMPANY-19919208

PATIENT
  Age: 64 Year
  Sex: Female

DRUGS (3)
  1. CYMBALTA [Concomitant]
     Active Substance: DULOXETINE HYDROCHLORIDE
  2. LAMICTAL [Concomitant]
     Active Substance: LAMOTRIGINE
  3. ABILIFY [Suspect]
     Active Substance: ARIPIPRAZOLE
     Indication: MAJOR DEPRESSION
     Dates: end: 201311

REACTIONS (5)
  - Blood glucose increased [Unknown]
  - Tremor [Unknown]
  - Anxiety [Unknown]
  - Depression [Unknown]
  - Nausea [Unknown]
